FAERS Safety Report 10146952 (Version 1)
Quarter: 2014Q2

REPORT INFORMATION
  Report Type: Spontaneous
  Country: US (occurrence: None)
  Receive Date: 20140430
  Receipt Date: 20140430
  Transmission Date: 20141212
  Serious: Yes (Hospitalization)
  Sender: FDA-Public Use
  Company Number: None

PATIENT
  Age: 55 Year
  Sex: Female

DRUGS (11)
  1. WARFARIN [Suspect]
     Indication: ANTICOAGULANT THERAPY
     Dosage: VARIES, DAILY, PO?
     Route: 048
     Dates: start: 20130709, end: 20130709
  2. ATORVASTATIN [Concomitant]
  3. CALCIUM CARBONATE [Concomitant]
  4. CYANOCOBALAMIN [Concomitant]
  5. HYDROMORPHONE [Concomitant]
  6. FLUOXETINE [Concomitant]
  7. FLUTICASONE [Concomitant]
  8. GABAPENTIN [Concomitant]
  9. FUROSEMIDE [Concomitant]
  10. METOPROLOL [Concomitant]
  11. LANSOPRAZOLE [Concomitant]

REACTIONS (8)
  - Haematemesis [None]
  - Abdominal pain [None]
  - Melaena [None]
  - Feeling cold [None]
  - Cold sweat [None]
  - Dizziness [None]
  - International normalised ratio increased [None]
  - Gastric ulcer [None]
